FAERS Safety Report 4617089-7 (Version None)
Quarter: 2005Q1

REPORT INFORMATION
  Report Type: 
  Country: None (occurrence: None)
  Receive Date: 20050323
  Receipt Date: 20050121
  Transmission Date: 20050727
  Serious: Yes (Life-Threatening, Hospitalization)
  Sender: FDA-Public Use
  Company Number: DE-ROCHE-393254

PATIENT
  Age: 68 Year
  Sex: Female

DRUGS (2)
  1. ROFERON-A [Suspect]
     Indication: MALIGNANT MELANOMA
     Dosage: REPORTED AS 3X9MIU/WEEK.
     Route: 058
     Dates: start: 20050117, end: 20050117
  2. EUTHYROX [Concomitant]
     Indication: HYPOTHYROIDISM

REACTIONS (2)
  - DRUG TOXICITY [None]
  - PULMONARY OEDEMA [None]
